FAERS Safety Report 7935261-5 (Version None)
Quarter: 2011Q4

REPORT INFORMATION
  Report Type: 
  Country: None (occurrence: None)
  Receive Date: 20111122
  Receipt Date: 20111110
  Transmission Date: 20120403
  Serious: Yes (Life-Threatening, Hospitalization)
  Sender: FDA-Public Use
  Company Number: NO-PFIZER INC-2011284703

PATIENT
  Age: 66 Year
  Sex: Male

DRUGS (3)
  1. CORDARONE [Suspect]
     Indication: ARRHYTHMIA
     Dosage: 200 MG, 2X/DAY
     Route: 048
     Dates: start: 20030101
  2. BACTRIM [Interacting]
     Indication: EPIDIDYMITIS
     Dosage: 2 DF, 2X/DAY
     Route: 065
     Dates: start: 20111021, end: 20111024
  3. ZOCOR [Interacting]
     Indication: HYPERCHOLESTEROLAEMIA
     Dosage: 10 MG, DAILY
     Route: 065
     Dates: start: 20030101, end: 20111024

REACTIONS (4)
  - RENAL FAILURE [None]
  - RHABDOMYOLYSIS [None]
  - PARESIS [None]
  - DRUG INTERACTION [None]
